FAERS Safety Report 8798747 (Version 2)
Quarter: 2012Q4

REPORT INFORMATION
  Report Type: 
  Country: AR (occurrence: AR)
  Receive Date: 20120920
  Receipt Date: 20120928
  Transmission Date: 20130627
  Serious: Yes (Other)
  Sender: FDA-Public Use
  Company Number: AR-AMGEN-ARGSP2012059240

PATIENT
  Age: 38 Year
  Sex: Female

DRUGS (5)
  1. ENBREL [Suspect]
     Indication: RHEUMATOID ARTHRITIS
     Dosage: 25 mg, 2x/week
     Route: 058
     Dates: start: 20120117
  2. ENBREL [Suspect]
     Dosage: 50 mg, weekly
     Route: 058
     Dates: start: 20120117, end: 201208
  3. METHOTREXATE [Concomitant]
     Dosage: UNK
     Route: 058
  4. LEVOTHYROXINE [Concomitant]
     Dosage: UNK
     Route: 048
  5. ATENOLOL [Concomitant]
     Dosage: UNK
     Route: 048

REACTIONS (2)
  - Application site cellulitis [Recovered/Resolved]
  - Application site eczema [Recovered/Resolved]
